FAERS Safety Report 4380253-9 (Version None)
Quarter: 2004Q2

REPORT INFORMATION
  Report Type: 
  Country: None (occurrence: None)
  Receive Date: 20040614
  Receipt Date: 20040602
  Transmission Date: 20050107
  Serious: Yes (Life-Threatening, Hospitalization, Other)
  Sender: FDA-Public Use
  Company Number: 2004022994

PATIENT
  Age: 41 Year
  Sex: Female
  Weight: 54 kg

DRUGS (6)
  1. SERLAIN (SERTRALINE) [Suspect]
     Indication: ANXIETY
     Dosage: 100 MG (50 MG, 2 IN 1 D), ORAL
     Route: 048
     Dates: start: 19941021, end: 20040122
  2. SERLAIN (SERTRALINE) [Suspect]
     Indication: DEPRESSION
     Dosage: 100 MG (50 MG, 2 IN 1 D), ORAL
     Route: 048
     Dates: start: 19941021, end: 20040122
  3. ANALGESICS (ANALGESICS) [Suspect]
     Dosage: ORAL
     Route: 048
     Dates: start: 19980304, end: 20040122
  4. MESALAMINE [Concomitant]
  5. SUMATRIPTAN SUCCINATE [Concomitant]
  6. IBUPROFEN [Concomitant]

REACTIONS (3)
  - HEPATIC FAILURE [None]
  - HEPATIC NECROSIS [None]
  - LIVER TRANSPLANT [None]
